FAERS Safety Report 18455596 (Version 1)
Quarter: 2020Q4

REPORT INFORMATION
  Report Type: Spontaneous
  Country: CN (occurrence: CN)
  Receive Date: 20201102
  Receipt Date: 20201102
  Transmission Date: 20210114
  Serious: Yes (Hospitalization)
  Sender: FDA-Public Use
  Company Number: CN-BAXTER-2020BAX022055

PATIENT
  Age: 14 Year
  Sex: Female
  Weight: 76 kg

DRUGS (6)
  1. 0.9% SODIUM CHLORIDE INJECTION [Suspect]
     Active Substance: SODIUM CHLORIDE
     Dosage: CYCLOPHOSPHAMIDE 0.9G + NS 500ML; VAC REGIMEN
     Route: 041
     Dates: start: 20201004, end: 20201005
  2. VINDESINE SULFATE [Suspect]
     Active Substance: VINDESINE SULFATE
     Indication: PLASMA CELL MYELOMA
     Dosage: VINDESINE SULFATE 4 MG + NS 500ML; VAC REGIMEN
     Route: 041
     Dates: start: 20201003, end: 20201003
  3. 0.9% SODIUM CHLORIDE INJECTION [Suspect]
     Active Substance: SODIUM CHLORIDE
     Indication: MEDICATION DILUTION
     Dosage: VINDESINE SULFATE 4 MG + NS 500ML; VAC REGIMEN
     Route: 041
     Dates: start: 20201003, end: 20201003
  4. 5% GLUCOSE  INJECTION [Suspect]
     Active Substance: DEXTROSE
     Indication: MEDICATION DILUTION
     Dosage: DOXORUBICIN LIPOSOME 60 MG + GS 500ML; VAC REGIMEN
     Route: 041
     Dates: start: 20201004, end: 20201005
  5. ENDOXAN [Suspect]
     Active Substance: CYCLOPHOSPHAMIDE
     Indication: PLASMA CELL MYELOMA
     Dosage: CYCLOPHOSPHAMIDE 0.9 G + NS 500ML; VAC REGIMEN
     Route: 041
     Dates: start: 20201004, end: 20201005
  6. DOXORUBICIN HYDROCHLORIDE LIPOSOMAL [Suspect]
     Active Substance: DOXORUBICIN HYDROCHLORIDE
     Indication: PLASMA CELL MYELOMA
     Dosage: DOXORUBICIN LIPOSOME 60 MG + GS 500ML; VAC REGIMEN
     Route: 041
     Dates: start: 20201004, end: 20201005

REACTIONS (1)
  - Myelosuppression [Recovering/Resolving]

NARRATIVE: CASE EVENT DATE: 20201012
